FAERS Safety Report 6412127-3 (Version None)
Quarter: 2009Q4

REPORT INFORMATION
  Report Type: 
  Country: None (occurrence: None)
  Receive Date: 20091023
  Receipt Date: 20091020
  Transmission Date: 20100525
  Serious: Yes (Death, Hospitalization)
  Sender: FDA-Public Use
  Company Number: CA-NOVOPROD-273149

PATIENT
  Age: 84 Year
  Sex: Female

DRUGS (11)
  1. NOVOMIX 30 PENFILL 3 ML [Suspect]
     Indication: TYPE 2 DIABETES MELLITUS
     Dosage: 6 IU, QD
     Route: 058
     Dates: start: 20071001
  2. HYDROMORPHONE [Concomitant]
     Dosage: 6 MG, QD
     Route: 048
     Dates: start: 20041006
  3. AMITRIPTYLINE [Concomitant]
     Dosage: 10 MG, UNK
     Route: 048
     Dates: start: 20040322
  4. FERROUS GLUCONATE [Concomitant]
     Dosage: 300 MG, QD
     Route: 048
     Dates: start: 20071130
  5. GLYCON                             /00082702/ [Concomitant]
     Dosage: 1000 MG, QD
     Route: 048
     Dates: start: 20010724
  6. METOCLOPRAMIDE [Concomitant]
     Dosage: 30 MG, QD
     Route: 048
     Dates: start: 20040721
  7. METOPROLOL [Concomitant]
     Dosage: 50 MG, QD
     Route: 048
     Dates: start: 20010724
  8. SENOKOT [Concomitant]
     Dosage: 2 TAB, QD
     Route: 048
     Dates: start: 20071130
  9. GABAPENTIN [Concomitant]
     Dosage: 300 MG, QD
     Route: 048
     Dates: start: 20070312
  10. NITROSTAT [Concomitant]
     Dosage: UNK, QD
     Route: 048
     Dates: start: 20061006
  11. COZAAR [Concomitant]
     Dosage: 100 MG, QD
     Dates: start: 20040322

REACTIONS (1)
  - DEATH [None]
